FAERS Safety Report 5951924-5 (Version None)
Quarter: 2008Q4

REPORT INFORMATION
  Report Type: 
  Country: None (occurrence: None)
  Receive Date: 20081022
  Receipt Date: 20080616
  Transmission Date: 20090506
  Serious: Yes (Other)
  Sender: FDA-Public Use
  Company Number: ALL1-2008-01782

PATIENT
  Sex: 0

DRUGS (1)
  1. VYVANSE [Suspect]

REACTIONS (1)
  - DEPRESSION [None]
